FAERS Safety Report 9507010 (Version 1)
Quarter: 2013Q3

REPORT INFORMATION
  Report Type: Spontaneous
  Country: DE (occurrence: None)
  Receive Date: 20130904
  Receipt Date: 20130904
  Transmission Date: 20140515
  Serious: Yes (Life-Threatening, Hospitalization, Disabling)
  Sender: FDA-Public Use
  Company Number: 2013P1018813

PATIENT
  Age: 43 Year
  Sex: Male

DRUGS (1)
  1. DIAZEPAM [Suspect]

REACTIONS (12)
  - Suicide attempt [None]
  - Somnolence [None]
  - Respiratory depression [None]
  - Hypotension [None]
  - Cyanosis [None]
  - Parkinsonism [None]
  - Hypokinesia [None]
  - Disorientation [None]
  - Muscle spasticity [None]
  - Encephalopathy [None]
  - Toxicity to various agents [None]
  - Hypotonia [None]
